FAERS Safety Report 11708684 (Version 1)
Quarter: 2015Q4

REPORT INFORMATION
  Report Type: Spontaneous
  Country: US (occurrence: US)
  Receive Date: 20151104
  Receipt Date: 20151104
  Transmission Date: 20160304
  Serious: No
  Sender: FDA-Public Use
  Company Number: US-ELI_LILLY_AND_COMPANY-US201108000394

PATIENT
  Age: 59 Year
  Sex: Female

DRUGS (3)
  1. VITAMIN D [Concomitant]
     Active Substance: CHOLECALCIFEROL
  2. CALCIUM [Concomitant]
     Active Substance: CALCIUM
  3. FORTEO [Suspect]
     Active Substance: TERIPARATIDE
     Indication: OSTEOPOROSIS
     Dosage: 20 UG, QD
     Route: 065
     Dates: start: 201005

REACTIONS (12)
  - Eye swelling [Recovering/Resolving]
  - Musculoskeletal stiffness [Unknown]
  - Peripheral swelling [Recovered/Resolved]
  - Stomach mass [Unknown]
  - Intentional product misuse [Recovered/Resolved]
  - Joint swelling [Recovered/Resolved]
  - Rash pruritic [Unknown]
  - Hypersensitivity [Recovered/Resolved]
  - Musculoskeletal discomfort [Recovering/Resolving]
  - Pruritus [Recovering/Resolving]
  - Skin mass [Recovered/Resolved]
  - Feeling hot [Recovered/Resolved]

NARRATIVE: CASE EVENT DATE: 201107
